FAERS Safety Report 12901286 (Version 2)
Quarter: 2016Q4

REPORT INFORMATION
  Report Type: Spontaneous
  Country: US (occurrence: US)
  Receive Date: 20161101
  Receipt Date: 20161130
  Transmission Date: 20170207
  Serious: Yes (Other)
  Sender: FDA-Public Use
  Company Number: US-JAZZ-2016-US-021206

PATIENT
  Age: 38 Year
  Sex: Female

DRUGS (3)
  1. PRIALT [Suspect]
     Active Substance: ZICONOTIDE ACETATE
     Indication: MUSCLE SPASTICITY
     Dosage: 0.083 ?G, QH
     Route: 037
     Dates: start: 20160330
  2. PRIALT [Suspect]
     Active Substance: ZICONOTIDE ACETATE
     Dosage: 0.113 ?G, QH
     Route: 037
     Dates: start: 20160727
  3. PRIALT [Suspect]
     Active Substance: ZICONOTIDE ACETATE
     Dosage: 0.104 ?G, QH
     Route: 037
     Dates: start: 20160615

REACTIONS (11)
  - Migraine [Unknown]
  - Dyspnoea [Unknown]
  - Blindness [Recovered/Resolved]
  - Feeling cold [Unknown]
  - Paraesthesia [Unknown]
  - Nausea [Unknown]
  - Weight increased [Unknown]
  - Mobility decreased [Recovered/Resolved]
  - Seizure [Recovered/Resolved]
  - Loss of consciousness [Recovered/Resolved]
  - Dysarthria [Recovered/Resolved]

NARRATIVE: CASE EVENT DATE: 201602
